FAERS Safety Report 20443821 (Version 2)
Quarter: 2022Q1

REPORT INFORMATION
  Report Type: Report from Study
  Country: US (occurrence: None)
  Receive Date: 20220208
  Receipt Date: 20220214
  Transmission Date: 20220423
  Serious: Yes (Other)
  Sender: FDA-Public Use
  Company Number: 2022A056786

PATIENT
  Sex: Male

DRUGS (1)
  1. CALQUENCE [Suspect]
     Active Substance: ACALABRUTINIB
     Indication: Mantle cell lymphoma
     Route: 048
     Dates: start: 20220114

REACTIONS (6)
  - Fatigue [Unknown]
  - Platelet count abnormal [Unknown]
  - Asthenia [Unknown]
  - Splenic haematoma [Unknown]
  - Depression [Unknown]
  - Product dose omission issue [Unknown]
